FAERS Safety Report 13286381 (Version 1)
Quarter: 2017Q1

REPORT INFORMATION
  Report Type: Spontaneous
  Country: US (occurrence: US)
  Receive Date: 20170302
  Receipt Date: 20170302
  Transmission Date: 20170428
  Serious: No
  Sender: FDA-Public Use
  Company Number: US-VALIDUS PHARMACEUTICALS LLC-US-2015VAL001390

PATIENT

DRUGS (1)
  1. DRISDOL [Suspect]
     Active Substance: ERGOCALCIFEROL
     Indication: PRODUCT USED FOR UNKNOWN INDICATION
     Dosage: UNK, ONCE
     Dates: start: 20150519

REACTIONS (3)
  - Wheezing [Unknown]
  - Malaise [Unknown]
  - Bronchial disorder [Unknown]

NARRATIVE: CASE EVENT DATE: 20150519
